FAERS Safety Report 4747602-0 (Version None)
Quarter: 2005Q3

REPORT INFORMATION
  Report Type: 
  Country: None (occurrence: None)
  Receive Date: 20050818
  Receipt Date: 20041210
  Transmission Date: 20060218
  Serious: No
  Sender: FDA-Public Use
  Company Number: US-BRISTOL-MYERS SQUIBB COMPANY-12791679

PATIENT
  Age: 60 Year
  Sex: Female
  Weight: 63 kg

DRUGS (3)
  1. TEQUIN [Suspect]
     Indication: UPPER RESPIRATORY TRACT INFECTION
     Route: 048
     Dates: start: 20040929, end: 20041001
  2. AFRIN [Concomitant]
     Route: 045
  3. VITAMINS [Concomitant]
     Dosage: DURATION: SEVERAL YEARS.

REACTIONS (2)
  - RASH PRURITIC [None]
  - SWELLING FACE [None]
